FAERS Safety Report 18607038 (Version 1)
Quarter: 2020Q4

REPORT INFORMATION
  Report Type: Spontaneous
  Country: US (occurrence: US)
  Receive Date: 20201211
  Receipt Date: 20201211
  Transmission Date: 20210114
  Serious: No
  Sender: FDA-Public Use
  Company Number: US-BAUSCH-BL-2020-034686

PATIENT
  Age: 76 Year
  Sex: Female

DRUGS (2)
  1. LOTEMAX [Suspect]
     Active Substance: LOTEPREDNOL ETABONATE
     Route: 047
     Dates: start: 202011
  2. LOTEMAX [Suspect]
     Active Substance: LOTEPREDNOL ETABONATE
     Indication: CORNEAL TRANSPLANT
     Route: 047
     Dates: start: 2008, end: 202011

REACTIONS (5)
  - Product use issue [Unknown]
  - Eye pain [Recovering/Resolving]
  - Therapy interrupted [Unknown]
  - Insurance issue [Unknown]
  - Eye irritation [Recovering/Resolving]

NARRATIVE: CASE EVENT DATE: 202011
